FAERS Safety Report 21974698 (Version 4)
Quarter: 2023Q2

REPORT INFORMATION
  Report Type: Report from Study
  Country: US (occurrence: US)
  Receive Date: 20230209
  Receipt Date: 20230616
  Transmission Date: 20230721
  Serious: No
  Sender: FDA-Public Use
  Company Number: US-002147023-NVSC2023US023491

PATIENT
  Age: 50 Year
  Sex: Male

DRUGS (1)
  1. KESIMPTA [Suspect]
     Active Substance: OFATUMUMAB
     Indication: Relapsing multiple sclerosis
     Dosage: UNK
     Route: 065
     Dates: start: 20230125

REACTIONS (5)
  - Trismus [Recovered/Resolved]
  - Influenza like illness [Unknown]
  - Headache [Recovered/Resolved]
  - Oropharyngeal pain [Unknown]
  - Discomfort [Unknown]

NARRATIVE: CASE EVENT DATE: 20230126
